FAERS Safety Report 15838535 (Version 2)
Quarter: 2019Q1

REPORT INFORMATION
  Report Type: Report from Study
  Country: CN (occurrence: CN)
  Receive Date: 20190117
  Receipt Date: 20190122
  Transmission Date: 20190417
  Serious: Yes (Life-Threatening)
  Sender: FDA-Public Use
  Company Number: CN-CELGENEUS-CHN-20190104581

PATIENT
  Age: 65 Year
  Sex: Male
  Weight: 63 kg

DRUGS (8)
  1. CARBOPLATIN. [Suspect]
     Active Substance: CARBOPLATIN
     Dosage: 600 MG, Q3WK
     Route: 042
     Dates: start: 20190103, end: 20190103
  2. ABRAXANE [Suspect]
     Active Substance: PACLITAXEL
     Dosage: DOSE REDUCED
     Route: 042
     Dates: start: 20190114
  3. ABRAXANE [Suspect]
     Active Substance: PACLITAXEL
     Indication: LUNG SQUAMOUS CELL CARCINOMA STAGE III
     Dosage: 170 MG, Q7D
     Route: 042
     Dates: start: 20181213, end: 20181213
  4. CARBOPLATIN. [Suspect]
     Active Substance: CARBOPLATIN
     Indication: LUNG SQUAMOUS CELL CARCINOMA STAGE III
     Dosage: 600 MG, Q3WK
     Route: 042
     Dates: start: 20181213, end: 20181213
  5. ABRAXANE [Suspect]
     Active Substance: PACLITAXEL
     Dosage: 170 MG, Q7D
     Route: 042
     Dates: start: 20190103, end: 20190103
  6. BGB-A317/TISLELIZUMAB [Suspect]
     Active Substance: TISLELIZUMAB
     Indication: LUNG SQUAMOUS CELL CARCINOMA STAGE III
     Dosage: 200 MG, Q3WK
     Route: 042
     Dates: start: 20181213, end: 20181213
  7. CARBOPLATIN. [Suspect]
     Active Substance: CARBOPLATIN
     Dosage: DOSE REDUCED
     Route: 042
     Dates: start: 20190114
  8. BGB-A317/TISLELIZUMAB [Suspect]
     Active Substance: TISLELIZUMAB
     Dosage: 200 MG, Q3WK
     Route: 042
     Dates: start: 20190103, end: 20190103

REACTIONS (2)
  - Neutrophil count decreased [Recovered/Resolved]
  - Neutrophil count decreased [Not Recovered/Not Resolved]

NARRATIVE: CASE EVENT DATE: 20190110
